FAERS Safety Report 8894108 (Version 1)
Quarter: 2012Q4

REPORT INFORMATION
  Report Type: 
  Country: US (occurrence: US)
  Receive Date: 20121108
  Receipt Date: 20121108
  Transmission Date: 20130627
  Serious: No
  Sender: FDA-Public Use
  Company Number: US-009507513-1211USA000754

PATIENT
  Sex: Male

DRUGS (9)
  1. PEG-INTRON [Suspect]
     Dosage: 120 micrograms per 0.5 ml (4 syringe per pack), qw
     Route: 058
  2. RIBAVIRIN [Suspect]
     Dosage: 200 mg, UNK
  3. TELAPREVIR [Suspect]
     Dosage: 375 mg, UNK
  4. ADVAIR [Concomitant]
     Dosage: DISKU AER 500/50
  5. COMBIVENT [Concomitant]
  6. ASPIRIN [Concomitant]
     Dosage: 81 mg, UNK
  7. ONDANSETRON [Concomitant]
     Dosage: 8 mg, qd
  8. TRAZODONE HYDROCHLORIDE [Concomitant]
     Dosage: 50 mg, UNK
  9. CITALOPRAM [Concomitant]
     Dosage: 10 mg, UNK

REACTIONS (10)
  - Psychiatric symptom [Unknown]
  - Tachyphrenia [Unknown]
  - Vomiting [Unknown]
  - Red blood cell count decreased [Unknown]
  - Influenza like illness [Unknown]
  - Tremor [Unknown]
  - Nausea [Unknown]
  - Diarrhoea [Unknown]
  - Anxiety [Unknown]
  - Haemoglobin decreased [Unknown]
